FAERS Safety Report 7279721-1 (Version None)
Quarter: 2011Q1

REPORT INFORMATION
  Report Type: 
  Country: None (occurrence: None)
  Receive Date: 20110208
  Receipt Date: 20110202
  Transmission Date: 20110831
  Serious: Yes (Death, Hospitalization)
  Sender: FDA-Public Use
  Company Number: US-US-EMD SERONO, INC.-7020768

PATIENT
  Sex: Female

DRUGS (2)
  1. PREDNISONE [Concomitant]
     Route: 048
     Dates: end: 20100901
  2. REBIF [Suspect]
     Indication: MULTIPLE SCLEROSIS
     Route: 058
     Dates: start: 20100914, end: 20101101

REACTIONS (2)
  - PARANEOPLASTIC SYNDROME [None]
  - MULTIPLE SCLEROSIS RELAPSE [None]
